FAERS Safety Report 6247903-3 (Version None)
Quarter: 2009Q2

REPORT INFORMATION
  Report Type: 
  Country: None (occurrence: None)
  Receive Date: 20090626
  Receipt Date: 20090622
  Transmission Date: 20091009
  Serious: Yes (Life-Threatening, Hospitalization, Other)
  Sender: FDA-Public Use
  Company Number: AU-WYE-H09843609

PATIENT
  Sex: Female

DRUGS (30)
  1. SIROLIMUS [Suspect]
     Indication: PROPHYLAXIS AGAINST TRANSPLANT REJECTION
     Route: 048
     Dates: start: 20040609, end: 20041230
  2. MYCOPHENOLATE MOFETIL [Suspect]
     Indication: PROPHYLAXIS AGAINST TRANSPLANT REJECTION
     Dosage: DOSAGE VARIED
     Route: 048
     Dates: start: 20040609
  3. TACROLIMUS [Suspect]
     Indication: PROPHYLAXIS AGAINST TRANSPLANT REJECTION
     Dosage: 6 MG
     Route: 048
     Dates: start: 20040606, end: 20040606
  4. TACROLIMUS [Suspect]
     Route: 048
     Dates: start: 20040809
  5. CYCLOSPORINE [Concomitant]
     Indication: PROPHYLAXIS AGAINST TRANSPLANT REJECTION
     Route: 048
     Dates: start: 20050517, end: 20050621
  6. PREDNISONE TAB [Suspect]
     Indication: PROPHYLAXIS AGAINST TRANSPLANT REJECTION
     Route: 048
     Dates: start: 20040612
  7. METHYLPREDNISOLONE [Suspect]
     Indication: PROPHYLAXIS AGAINST TRANSPLANT REJECTION
     Route: 042
     Dates: start: 20040609, end: 20051120
  8. OMEPRAZOLE [Concomitant]
     Dosage: UNSPECIFIED
     Dates: start: 20040902
  9. VALACYCLOVIR HCL [Concomitant]
     Dosage: UNSPECIFIED
     Dates: start: 20040615
  10. LEVOTHYROXINE SODIUM [Concomitant]
     Dosage: UNSPECIFIED
     Dates: start: 20040901
  11. CALCITRIOL [Concomitant]
  12. ATENOLOL [Concomitant]
     Dosage: UNSPECIFIED
     Dates: start: 20050316
  13. LIPITOR [Concomitant]
     Dosage: UNSPECIFIED
     Dates: start: 20040629
  14. LASIX [Concomitant]
     Dosage: UNSPECIFIED
     Dates: start: 20040713
  15. SLOW-K [Concomitant]
     Dosage: UNSPECIFIED
     Dates: end: 20040901
  16. ACTRAPID HUMAN [Concomitant]
     Dosage: UNSPECIFIED
     Dates: start: 20050226
  17. ADALAT [Concomitant]
     Dosage: UNSPECIFIED
     Dates: start: 20061009
  18. ARANESP [Concomitant]
     Dosage: UNSPECIFIED
     Dates: start: 20040803
  19. ATGAM [Concomitant]
     Dosage: UNSPECIFIED
     Dates: start: 20041025, end: 20041031
  20. AZATHIOPRINE [Concomitant]
     Dosage: UNSPECIFIED
     Dates: start: 20050531
  21. DARBEPOETIN ALFA [Concomitant]
     Dosage: UNSPECIFIED
     Dates: start: 20040803
  22. DIAMICRON [Concomitant]
     Dosage: UNSPECIFIED
     Dates: start: 20050520
  23. METRONIDAZOLE [Concomitant]
     Dosage: UNSPECIFIED
     Dates: start: 20050305, end: 20050514
  24. NYSTATIN [Concomitant]
     Dosage: UNSPECIFIED
     Dates: start: 20040617, end: 20040719
  25. PENTAMIDINE ISETHIONATE [Concomitant]
     Dosage: UNSPECIFIED
     Dates: start: 20040616
  26. PRAZSOIN HCL [Concomitant]
     Dosage: UNSPECIFIED
     Dates: start: 20050506, end: 20050517
  27. FERRITIN [Concomitant]
     Dosage: UNSPECIFIED
     Dates: start: 20050228
  28. VALGANCICLOVIR HCL [Concomitant]
     Dosage: UNSPECIFIED
     Dates: start: 20050226, end: 20050301
  29. NORFLOXACIN [Concomitant]
     Dosage: UNSPECIFIED
     Dates: start: 20040903
  30. DACLIZUMAB [Suspect]
     Indication: PROPHYLAXIS AGAINST TRANSPLANT REJECTION
     Dosage: 135 MG
     Route: 042
     Dates: start: 20040609, end: 20040805

REACTIONS (11)
  - ANAEMIA [None]
  - BLEEDING TIME PROLONGED [None]
  - COLON CANCER [None]
  - EPSTEIN-BARR VIRUS ASSOCIATED LYMPHOPROLIFERATIVE DISORDER [None]
  - HEADACHE [None]
  - HYDRONEPHROSIS [None]
  - HYPERTENSION [None]
  - LEUKOPENIA [None]
  - PYREXIA [None]
  - SQUAMOUS CELL CARCINOMA [None]
  - URETERIC OBSTRUCTION [None]
